FAERS Safety Report 8001994-8 (Version None)
Quarter: 2011Q4

REPORT INFORMATION
  Report Type: 
  Country: None (occurrence: None)
  Receive Date: 20111220
  Receipt Date: 20111205
  Transmission Date: 20120403
  Serious: Yes (Hospitalization)
  Sender: FDA-Public Use
  Company Number: JPI-P-018603

PATIENT
  Age: 71 Year
  Sex: Female
  Weight: 88.4514 kg

DRUGS (7)
  1. AMLODIPINE [Concomitant]
  2. ACETYLSALICYLIC ACID SRT [Concomitant]
  3. LEVOTHYROXINE SODIUM [Concomitant]
  4. XYREM [Suspect]
     Indication: CATAPLEXY
     Dosage: 4.5 GM (2.25 GM, 2 IN 1 D), ORAL (UNSPECIFIED INTERIM DOSE), ORAL 7.5 GM (3.75 GM, 2 IN 1 D), ORAL
     Route: 048
     Dates: start: 20040621
  5. XYREM [Suspect]
     Indication: CATAPLEXY
     Dosage: 4.5 GM (2.25 GM, 2 IN 1 D), ORAL (UNSPECIFIED INTERIM DOSE), ORAL 7.5 GM (3.75 GM, 2 IN 1 D), ORAL
     Route: 048
     Dates: start: 20070808
  6. PRAMIPEXOLE DIHYCHLLORIDE [Concomitant]
  7. MODAFINIL [Concomitant]

REACTIONS (1)
  - ARTHROPATHY [None]
